FAERS Safety Report 22323892 (Version 2)
Quarter: 2023Q2

REPORT INFORMATION
  Report Type: Spontaneous
  Country: IT (occurrence: None)
  Receive Date: 20230516
  Receipt Date: 20230630
  Transmission Date: 20230721
  Serious: Yes (Other)
  Sender: FDA-Public Use
  Company Number: 2023A106129

PATIENT
  Age: 77 Year
  Sex: Female
  Weight: 72 kg

DRUGS (5)
  1. LYNPARZA [Suspect]
     Active Substance: OLAPARIB
     Indication: Ovarian cancer metastatic
     Route: 048
     Dates: start: 2021, end: 20230327
  2. LYNPARZA [Suspect]
     Active Substance: OLAPARIB
     Indication: BRCA1 gene mutation
     Route: 048
     Dates: start: 2021, end: 20230327
  3. INSULIN LISPRO [Concomitant]
     Active Substance: INSULIN LISPRO
  4. EDOXABAN TOSYLATE [Concomitant]
     Active Substance: EDOXABAN TOSYLATE
  5. NORVASC [Concomitant]
     Active Substance: AMLODIPINE BESYLATE

REACTIONS (1)
  - Interstitial lung disease [Recovering/Resolving]

NARRATIVE: CASE EVENT DATE: 20230327
